FAERS Safety Report 24103156 (Version 1)
Quarter: 2024Q3

REPORT INFORMATION
  Report Type: Spontaneous
  Country: ZA (occurrence: None)
  Receive Date: 20240717
  Receipt Date: 20240717
  Transmission Date: 20241016
  Serious: Yes (Other)
  Sender: ASTRAZENECA
  Company Number: 2024A157379

PATIENT
  Age: 44 Year
  Sex: Female

DRUGS (11)
  1. DAPAGLIFLOZIN PROPANEDIOL [Suspect]
     Active Substance: DAPAGLIFLOZIN PROPANEDIOL
     Indication: Type 2 diabetes mellitus
     Route: 048
  2. OZEMPIC [Concomitant]
     Active Substance: SEMAGLUTIDE
     Indication: Type 2 diabetes mellitus
     Route: 048
  3. DIS-CHEM PARACETAMOL [Concomitant]
     Route: 048
  4. FEXO [Concomitant]
     Indication: Hypersensitivity
     Route: 048
  5. ALLECET [Concomitant]
     Indication: Hypersensitivity
     Route: 048
  6. PENDINE [Concomitant]
     Indication: Hypertension
     Route: 048
  7. PENDINE [Concomitant]
     Indication: Cardiac disorder
     Route: 048
  8. DYNA-LEVETIRACETAM [Concomitant]
     Indication: Epilepsy
     Route: 048
  9. GLICLAZIDE [Concomitant]
     Active Substance: GLICLAZIDE
     Indication: Type 2 diabetes mellitus
     Route: 048
  10. RIVAROXABAN [Concomitant]
     Active Substance: RIVAROXABAN
     Indication: Thrombosis
     Route: 048
  11. LIPOGEN [Concomitant]
     Indication: Blood cholesterol
     Route: 048

REACTIONS (1)
  - Cerebrovascular accident [Unknown]

NARRATIVE: CASE EVENT DATE: 20240708
